FAERS Safety Report 7911538-4 (Version None)
Quarter: 2011Q4

REPORT INFORMATION
  Report Type: 
  Country: None (occurrence: None)
  Receive Date: 20111114
  Receipt Date: 20111031
  Transmission Date: 20120403
  Serious: Yes (Other)
  Sender: FDA-Public Use
  Company Number: US-ELI_LILLY_AND_COMPANY-US201111000425

PATIENT
  Age: 60 Year
  Sex: Female

DRUGS (12)
  1. CYMBALTA [Suspect]
     Indication: DEPRESSION
     Dosage: 30 MG, BID
     Dates: start: 20100901, end: 20101001
  2. BACLOFEN [Interacting]
  3. XANAX [Concomitant]
  4. CYMBALTA [Interacting]
     Dosage: 30 MG, BID
     Dates: start: 20110801, end: 20110801
  5. CYMBALTA [Interacting]
     Dosage: 30 MG, QD
     Dates: start: 20110801
  6. COPAXONE [Concomitant]
  7. TRAMADOL HCL [Concomitant]
  8. OXYBUTYNIN [Concomitant]
  9. NAPROXEN (ALEVE) [Concomitant]
  10. ASPIRIN [Concomitant]
  11. ADVIL LIQUI-GELS [Concomitant]
  12. TRAZODONE HCL [Concomitant]

REACTIONS (10)
  - MOBILITY DECREASED [None]
  - DIZZINESS [None]
  - ABDOMINAL DISCOMFORT [None]
  - VOMITING [None]
  - DRUG INTERACTION [None]
  - BLADDER SPASM [None]
  - MULTIPLE SCLEROSIS [None]
  - MUSCLE RIGIDITY [None]
  - EYE PAIN [None]
  - NAUSEA [None]
